FAERS Safety Report 10498155 (Version 3)
Quarter: 2014Q4

REPORT INFORMATION
  Report Type: Spontaneous
  Country: US (occurrence: US)
  Receive Date: 20141006
  Receipt Date: 20141106
  Transmission Date: 20150528
  Serious: Yes (Hospitalization, Other)
  Sender: FDA-Public Use
  Company Number: US-TEVA-513041USA

PATIENT
  Age: 50 Year
  Sex: Female
  Weight: 58.11 kg

DRUGS (4)
  1. FENTORA [Suspect]
     Active Substance: FENTANYL CITRATE
     Indication: PAIN
     Route: 002
     Dates: start: 2013, end: 2013
  2. DILAUDID [Concomitant]
     Active Substance: HYDROMORPHONE HYDROCHLORIDE
     Indication: PAIN
     Dosage: FREQUENCY NOT PROVIDED
  3. ACTIQ [Suspect]
     Active Substance: FENTANYL CITRATE
     Indication: PRODUCT USED FOR UNKNOWN INDICATION
     Dosage: EVERY 4 HOURS AS NEEDED
     Route: 048
  4. FENTANYL. [Concomitant]
     Active Substance: FENTANYL

REACTIONS (12)
  - Hospitalisation [Unknown]
  - Sepsis [Unknown]
  - Abasia [Not Recovered/Not Resolved]
  - Central nervous system infection [Unknown]
  - Weight decreased [Not Recovered/Not Resolved]
  - Pain [Recovered/Resolved]
  - Streptococcus test positive [Recovered/Resolved]
  - Drug tolerance [Unknown]
  - Mental impairment [Not Recovered/Not Resolved]
  - Fungal infection [Not Recovered/Not Resolved]
  - Oral mucosal blistering [Recovered/Resolved]
  - Gait disturbance [Not Recovered/Not Resolved]

NARRATIVE: CASE EVENT DATE: 201407
